FAERS Safety Report 6672911-8 (Version None)
Quarter: 2010Q2

REPORT INFORMATION
  Report Type: 
  Country: None (occurrence: None)
  Receive Date: 20100408
  Receipt Date: 20100329
  Transmission Date: 20101027
  Serious: Yes (Other)
  Sender: FDA-Public Use
  Company Number: PHHY2010MX08280

PATIENT
  Age: 72 Year
  Sex: Male

DRUGS (2)
  1. DIOVAN HCT [Suspect]
     Indication: HYPERTENSION
     Dosage: 1 TABLET (160/25 MG) DAILY
     Dates: start: 20060901, end: 20091230
  2. CARDURA [Concomitant]

REACTIONS (5)
  - CONDITION AGGRAVATED [None]
  - COUGH [None]
  - EMPHYSEMA [None]
  - PROSTATIC DISORDER [None]
  - URINARY TRACT OBSTRUCTION [None]
